FAERS Safety Report 9414516 (Version 3)
Quarter: 2013Q4

REPORT INFORMATION
  Report Type: Report from Study
  Country: FR (occurrence: FR)
  Receive Date: 20130723
  Receipt Date: 20131125
  Transmission Date: 20140711
  Serious: Yes (Life-Threatening)
  Sender: FDA-Public Use
  Company Number: FR-GLAXOSMITHKLINE-Z0020330A

PATIENT
  Age: 58 Year
  Sex: Female
  Weight: 53 kg

DRUGS (4)
  1. TRAMETINIB [Suspect]
     Indication: MALIGNANT MELANOMA
     Dosage: 2MG PER DAY
     Route: 048
     Dates: start: 20130613, end: 20130713
  2. DABRAFENIB [Suspect]
     Indication: MALIGNANT MELANOMA
     Dosage: 150MG TWICE PER DAY
     Route: 048
     Dates: start: 20130613, end: 20130715
  3. EUTHYRAL [Concomitant]
     Indication: HYPOTHYROIDISM
  4. KARDEGIC [Concomitant]
     Indication: CEREBROVASCULAR ACCIDENT

REACTIONS (1)
  - Hepatic enzyme increased [Recovered/Resolved]
